FAERS Safety Report 13690837 (Version 1)
Quarter: 2017Q2

REPORT INFORMATION
  Report Type: Spontaneous
  Country: DE (occurrence: DE)
  Receive Date: 20170626
  Receipt Date: 20170626
  Transmission Date: 20170830
  Serious: Yes (Hospitalization)
  Sender: FDA-Public Use
  Company Number: DE-BAYER-2017-116979

PATIENT
  Age: 25 Year
  Sex: Female

DRUGS (2)
  1. GERMANIN [Suspect]
     Active Substance: SURAMIN
     Dosage: UNK
     Dates: start: 2004, end: 2011
  2. MIRENA [Suspect]
     Active Substance: LEVONORGESTREL
     Dosage: 20 MCG/24HR, CONT
     Route: 015
     Dates: start: 2004, end: 2011

REACTIONS (12)
  - Anxiety [Recovering/Resolving]
  - Dizziness [Recovering/Resolving]
  - Blood oestrogen increased [None]
  - Hypothyroidism [Not Recovered/Not Resolved]
  - Thyroid mass [Not Recovered/Not Resolved]
  - Alopecia [Recovering/Resolving]
  - Urinary tract inflammation [Recovering/Resolving]
  - Cortisol increased [Not Recovered/Not Resolved]
  - Mental disorder [Recovering/Resolving]
  - Progesterone decreased [Not Recovered/Not Resolved]
  - Fluid retention [Recovering/Resolving]
  - Weight increased [Recovering/Resolving]
